FAERS Safety Report 6902986-X (Version None)
Quarter: 2010Q3

REPORT INFORMATION
  Report Type: 
  Country: None (occurrence: None)
  Receive Date: 20100803
  Receipt Date: 20080604
  Transmission Date: 20110219
  Serious: No
  Sender: FDA-Public Use
  Company Number: US-PFIZER INC-2008013245

PATIENT
  Sex: Male
  Weight: 68 kg

DRUGS (9)
  1. LYRICA [Suspect]
     Indication: NERVE INJURY
     Route: 048
     Dates: start: 20070129
  2. LYRICA [Suspect]
     Indication: NEUROPATHY PERIPHERAL
  3. OMEPRAZOLE [Concomitant]
  4. ZOLPIDEM TARTRATE [Concomitant]
  5. LOVASTATIN [Concomitant]
  6. NIACIN [Concomitant]
  7. TAMSULOSIN HYDROCHLORIDE [Concomitant]
  8. ATENOLOL [Concomitant]
  9. CLOPIDOGREL [Concomitant]

REACTIONS (3)
  - PAIN [None]
  - SOMNOLENCE [None]
  - WEIGHT INCREASED [None]
